FAERS Safety Report 5007421-7 (Version None)
Quarter: 2006Q2

REPORT INFORMATION
  Report Type: 
  Country: None (occurrence: None)
  Receive Date: 20060517
  Receipt Date: 20060504
  Transmission Date: 20061013
  Serious: Yes (Hospitalization)
  Sender: FDA-Public Use
  Company Number: ABX36-06-0232

PATIENT
  Age: 72 Year
  Sex: Female
  Weight: 69.4003 kg

DRUGS (11)
  1. ABRAXANE FOR INJECTABLE SUSPENSION (PACLITAXEL PROTEIN-BOUND PARTICLES [Suspect]
     Indication: NON-SMALL CELL LUNG CANCER
     Dosage: (537 MG), INTRAVENOUS DRIP
     Route: 041
     Dates: start: 20060330
  2. AVASTIN [Suspect]
     Indication: NON-SMALL CELL LUNG CANCER
     Dosage: (1110 MG, EVERY 21 DAYS), INTRAVENOUS DRIP
     Route: 041
     Dates: start: 20060330
  3. CARBOPLATIN [Suspect]
     Indication: NON-SMALL CELL LUNG CANCER
     Dosage: (504 MG), INTRAVENOUS DRIP
     Route: 041
     Dates: start: 20060330
  4. ZOCOR [Concomitant]
  5. PREVACID [Concomitant]
  6. ASPIRIN [Concomitant]
  7. FIBER SUPPLEMENT (PROTEIN SUPPLEMENTS) [Concomitant]
  8. KYTRIL [Concomitant]
  9. DEXAMETHASONE TAB [Concomitant]
  10. BENADRYL [Concomitant]
  11. ARANESP [Concomitant]

REACTIONS (2)
  - APPENDICEAL ABSCESS [None]
  - APPENDICITIS [None]
